FAERS Safety Report 16614521 (Version 4)
Quarter: 2019Q4

REPORT INFORMATION
  Report Type: Spontaneous
  Country: US (occurrence: US)
  Receive Date: 20190723
  Receipt Date: 20191028
  Transmission Date: 20200122
  Serious: No
  Sender: FDA-Public Use
  Company Number: US-PFIZER INC-2018336444

PATIENT
  Age: 55 Year
  Sex: Male
  Weight: 96 kg

DRUGS (2)
  1. LYRICA [Suspect]
     Active Substance: PREGABALIN
     Indication: PARAESTHESIA
     Dosage: 500 MG, DAILY (100 MG CAPSULE, ONE TWICE A DAY AND 3 AT BED TIME/ONE TAB BID AND 3 TABS QHS)
     Route: 048
     Dates: start: 20190110
  2. LYRICA [Suspect]
     Active Substance: PREGABALIN
     Indication: PAIN IN EXTREMITY
     Dosage: 500 MG, DAILY (100 MG CAPSULE, ONE TWICE A DAY AND 3 AT BED TIME/ONE TAB BID AND 3 TABS QHS)
     Route: 048
     Dates: start: 20190715

REACTIONS (3)
  - Product use issue [Unknown]
  - Weight increased [Unknown]
  - Off label use [Unknown]

NARRATIVE: CASE EVENT DATE: 2019
